FAERS Safety Report 25745846 (Version 1)
Quarter: 2025Q3

REPORT INFORMATION
  Report Type: Spontaneous
  Country: EU (occurrence: EU)
  Receive Date: 20250901
  Receipt Date: 20250901
  Transmission Date: 20251021
  Serious: Yes (Other)
  Sender: ACCORD
  Company Number: None

PATIENT
  Age: 48 Year
  Sex: Female
  Weight: 75 kg

DRUGS (1)
  1. CISPLATIN [Suspect]
     Active Substance: CISPLATIN
     Indication: Squamous cell carcinoma
     Dates: start: 20231018

REACTIONS (5)
  - Taste disorder [Recovering/Resolving]
  - Salivary hypersecretion [Recovering/Resolving]
  - Aphonia [Recovering/Resolving]
  - Dysphagia [Recovering/Resolving]
  - Intestinal transit time decreased [Recovering/Resolving]

NARRATIVE: CASE EVENT DATE: 20231101
